FAERS Safety Report 9770910 (Version 1)
Quarter: 2013Q4

REPORT INFORMATION
  Report Type: Spontaneous
  Country: US (occurrence: US)
  Receive Date: 20131218
  Receipt Date: 20131218
  Transmission Date: 20140711
  Serious: No
  Sender: FDA-Public Use
  Company Number: US-BIOGENIDEC-2013BI120382

PATIENT
  Sex: Female

DRUGS (5)
  1. TECFIDERA [Suspect]
     Indication: MULTIPLE SCLEROSIS
     Route: 048
     Dates: start: 201311
  2. SIMVASTATIN [Concomitant]
  3. SYNTHROID [Concomitant]
  4. VITAMIN D [Concomitant]
  5. ZANTAC [Concomitant]

REACTIONS (2)
  - Gastrointestinal sounds abnormal [Unknown]
  - Flushing [Unknown]
